FAERS Safety Report 5305385-X (Version None)
Quarter: 2007Q2

REPORT INFORMATION
  Report Type: 
  Country: None (occurrence: None)
  Receive Date: 20070416
  Receipt Date: 20070410
  Transmission Date: 20071010
  Serious: Yes (Hospitalization)
  Sender: FDA-Public Use
  Company Number: 2007SP006582

PATIENT
  Age: 42 Year
  Sex: Male
  Weight: 78.0187 kg

DRUGS (3)
  1. TEMODAL [Suspect]
     Indication: GLIOBLASTOMA MULTIFORME
     Dosage: 100 MG QD; PO
     Route: 048
  2. DECADRON [Concomitant]
  3. DILANTIN [Concomitant]

REACTIONS (1)
  - PANCREATITIS [None]
